FAERS Safety Report 8018973-7 (Version None)
Quarter: 2012Q1

REPORT INFORMATION
  Report Type: 
  Country: None (occurrence: None)
  Receive Date: 20120103
  Receipt Date: 20111229
  Transmission Date: 20120608
  Serious: Yes (Other)
  Sender: FDA-Public Use
  Company Number: US-PFIZER INC-2011316496

PATIENT
  Sex: Male
  Weight: 87.528 kg

DRUGS (13)
  1. EFFEXOR [Suspect]
     Indication: DEPRESSION
     Dosage: 150 MG, 2X/DAY
  2. EFFEXOR [Suspect]
     Indication: MOOD ALTERED
  3. EFFEXOR [Suspect]
     Indication: AGGRESSION
  4. EFFEXOR [Suspect]
     Indication: AGITATION
  5. GABAPENTIN [Suspect]
     Indication: MOOD ALTERED
  6. GABAPENTIN [Suspect]
     Indication: CLAUSTROPHOBIA
  7. GABAPENTIN [Suspect]
     Indication: AGITATION
  8. GABAPENTIN [Suspect]
     Indication: ANXIETY
  9. EFFEXOR [Suspect]
     Indication: PANIC ATTACK
  10. EFFEXOR [Suspect]
     Indication: ANXIETY
  11. GABAPENTIN [Suspect]
     Indication: AGGRESSION
     Dosage: 100 MG, DAILY
     Dates: start: 20111228, end: 20111229
  12. EFFEXOR [Suspect]
     Indication: CLAUSTROPHOBIA
  13. GABAPENTIN [Suspect]
     Indication: PANIC ATTACK

REACTIONS (9)
  - PANIC ATTACK [None]
  - AGITATION [None]
  - INSOMNIA [None]
  - SUICIDAL IDEATION [None]
  - ANXIETY [None]
  - RESTLESSNESS [None]
  - AGGRESSION [None]
  - MOOD ALTERED [None]
  - CLAUSTROPHOBIA [None]
